FAERS Safety Report 18699207 (Version 1)
Quarter: 2021Q1

REPORT INFORMATION
  Report Type: Spontaneous
  Country: US (occurrence: US)
  Receive Date: 20210105
  Receipt Date: 20210105
  Transmission Date: 20210419
  Serious: Yes (Other)
  Sender: FDA-Public Use
  Company Number: US-BIOVITRUM-2021US0034

PATIENT
  Age: 9 Month
  Sex: Male
  Weight: 8 kg

DRUGS (6)
  1. ALBUTEROL SULFATE. [Concomitant]
     Active Substance: ALBUTEROL SULFATE
  2. AZITHROMYCIN ANHYDROUS. [Concomitant]
     Active Substance: AZITHROMYCIN ANHYDROUS
     Dosage: 200 MG/5ML SUSP RECON
  3. TOBRAMYCIN. [Concomitant]
     Active Substance: TOBRAMYCIN
  4. SYMBICORT [Concomitant]
     Active Substance: BUDESONIDE\FORMOTEROL FUMARATE DIHYDRATE
     Dosage: 160?4.5MCG HFA AER AD
  5. GABAPENTIN. [Concomitant]
     Active Substance: GABAPENTIN
  6. SYNAGIS [Suspect]
     Active Substance: PALIVIZUMAB
     Indication: ANTIVIRAL PROPHYLAXIS
     Dosage: 100MG/1ML VL LIQUID
     Route: 030
     Dates: start: 202011

REACTIONS (2)
  - Pseudomonas infection [Unknown]
  - Neuralgia [Unknown]

NARRATIVE: CASE EVENT DATE: 202012
